FAERS Safety Report 15889491 (Version 3)
Quarter: 2019Q1

REPORT INFORMATION
  Report Type: Spontaneous
  Country: JP (occurrence: JP)
  Receive Date: 20190130
  Receipt Date: 20190314
  Transmission Date: 20190417
  Serious: Yes (Life-Threatening)
  Sender: FDA-Public Use
  Company Number: JP-ROCHE-2254742

PATIENT
  Age: 55 Year
  Sex: Female

DRUGS (5)
  1. MEDICON (DEXTROMETHORPHAN HYDROBROMIDE) [Concomitant]
     Active Substance: DEXTROMETHORPHAN HYDROBROMIDE
     Indication: INFLUENZA
     Route: 048
     Dates: start: 20190119, end: 20190123
  2. POLARAMINE [Concomitant]
     Active Substance: DEXCHLORPHENIRAMINE MALEATE
     Indication: INFLUENZA
     Route: 048
     Dates: start: 20190119, end: 20190123
  3. CALONAL [Suspect]
     Active Substance: ACETAMINOPHEN
     Indication: INFLUENZA
     Route: 048
     Dates: start: 20190119, end: 20190123
  4. MUCODYNE [Concomitant]
     Active Substance: CARBOCYSTEINE
     Indication: INFLUENZA
     Route: 048
     Dates: start: 20190119, end: 20190123
  5. XOFLUZA [Suspect]
     Active Substance: BALOXAVIR MARBOXIL
     Indication: INFLUENZA
     Route: 048
     Dates: start: 20190119, end: 20190119

REACTIONS (3)
  - Cystitis [Not Recovered/Not Resolved]
  - Anaphylactic reaction [Recovered/Resolved with Sequelae]
  - Dysgeusia [Not Recovered/Not Resolved]

NARRATIVE: CASE EVENT DATE: 20190119
